FAERS Safety Report 4758002-1 (Version None)
Quarter: 2005Q3

REPORT INFORMATION
  Report Type: 
  Country: None (occurrence: None)
  Receive Date: 20050826
  Receipt Date: 20050504
  Transmission Date: 20060218
  Serious: No
  Sender: FDA-Public Use
  Company Number: WAES 0504USA01963

PATIENT
  Age: 72 Year
  Sex: Male
  Weight: 122.0176 kg

DRUGS (15)
  1. ZETIA [Suspect]
     Indication: HYPERLIPIDAEMIA
     Dosage: 10 MG/DAILY/PO
     Route: 048
     Dates: start: 20040813, end: 20041012
  2. ZOCOR [Suspect]
     Dosage: 40 MG/DAILY/PO
     Route: 048
     Dates: end: 20041012
  3. AVANDIA [Concomitant]
  4. CARDIZEM [Concomitant]
  5. CATAPRES-TTS-1 [Concomitant]
  6. FLOMAX (MORNIFLUMATE) [Concomitant]
  7. HUMALOG [Concomitant]
  8. HYZAAR [Concomitant]
  9. LANTUS [Concomitant]
  10. PLAVIX [Concomitant]
  11. PREVACID [Concomitant]
  12. TOPROL-XL [Concomitant]
  13. ASPIRIN [Concomitant]
  14. FUROSEMIDE [Concomitant]
  15. QUININE SULFATE [Concomitant]

REACTIONS (2)
  - ASTHENIA [None]
  - LIVER FUNCTION TEST ABNORMAL [None]
